FAERS Safety Report 6098960-9 (Version None)
Quarter: 2009Q1

REPORT INFORMATION
  Report Type: 
  Country: None (occurrence: None)
  Receive Date: 20090302
  Receipt Date: 20090220
  Transmission Date: 20090719
  Serious: No
  Sender: FDA-Public Use
  Company Number: US-ELI_LILLY_AND_COMPANY-US200902006059

PATIENT
  Age: 35 Year
  Sex: Female

DRUGS (3)
  1. CYMBALTA [Suspect]
     Dosage: 60 MG, 2/D
     Route: 048
  2. CYMBALTA [Suspect]
     Dosage: 60 MG, UNK
     Route: 048
  3. LAMICTAL [Concomitant]

REACTIONS (2)
  - ABDOMINAL PAIN UPPER [None]
  - HEPATIC ENZYME INCREASED [None]
